FAERS Safety Report 15978496 (Version 2)
Quarter: 2020Q4

REPORT INFORMATION
  Report Type: Spontaneous
  Country: GB (occurrence: GB)
  Receive Date: 20190219
  Receipt Date: 20201112
  Transmission Date: 20210113
  Serious: Yes (Death, Life-Threatening, Other)
  Sender: FDA-Public Use
  Company Number: GB-DRREDDYS-GER/UKI/19/0107895

PATIENT
  Age: 77 Year
  Sex: Male
  Weight: 104 kg

DRUGS (20)
  1. PARACETAMOL [Concomitant]
     Active Substance: ACETAMINOPHEN
     Indication: PRODUCT USED FOR UNKNOWN INDICATION
     Dosage: 2 TO BE TAKEN FOUR TIMES DAILY WHEN REQUIRED
     Dates: start: 20180817
  2. HUMULIN M3 [Concomitant]
     Active Substance: INSULIN HUMAN
     Indication: DIABETES MELLITUS
     Dosage: USE AS DIRECTED
     Dates: start: 20180817
  3. RANITIDINE. [Concomitant]
     Active Substance: RANITIDINE
     Indication: PRODUCT USED FOR UNKNOWN INDICATION
     Dosage: USE AS DIRECTED FOR SYRINGE DRIVER
     Dates: start: 20180817
  4. INSTILLAGEL [Concomitant]
     Active Substance: CHLORHEXIDINE GLUCONATE\LIDOCAINE HYDROCHLORIDE
     Indication: PRODUCT USED FOR UNKNOWN INDICATION
     Dosage: USE AS DIRECTED
     Dates: start: 20190107, end: 20190108
  5. THIAMINE. [Concomitant]
     Active Substance: THIAMINE
     Indication: PRODUCT USED FOR UNKNOWN INDICATION
     Dates: start: 20180817
  6. MIDAZOLAM. [Concomitant]
     Active Substance: MIDAZOLAM
     Indication: RESTLESSNESS
     Dosage: IN PALLIATIVE CARE
     Dates: start: 20181115, end: 20181213
  7. HALOPERIDOL. [Concomitant]
     Active Substance: HALOPERIDOL
     Indication: HALLUCINATION
     Dosage: IN PALLIATIVE CARE
     Dates: start: 20190122
  8. LEVOMEPROMAZINE [Concomitant]
     Active Substance: LEVOMEPROMAZINE
     Indication: NAUSEA
     Dosage: IN PALLIATIVE CARE
     Dates: start: 20190124
  9. HYOSCINE BUTYLBROMIDE [Concomitant]
     Active Substance: BUTYLSCOPOLAMINE BROMIDE
     Indication: PRODUCT USED FOR UNKNOWN INDICATION
     Dosage: USE AS DIRECTED AS PER PALLIATIVE CARE DRUG CHART
     Dates: start: 20190122
  10. MEZOLAR MATRIX [Concomitant]
     Active Substance: FENTANYL
     Indication: PAIN
     Dates: start: 20181115
  11. HUMULIN L [Concomitant]
     Active Substance: INSULIN HUMAN
     Indication: PRODUCT USED FOR UNKNOWN INDICATION
     Dates: start: 20180817
  12. CYCLIZINE [Concomitant]
     Active Substance: CYCLIZINE
     Indication: PRODUCT USED FOR UNKNOWN INDICATION
     Dosage: USE AS DIRECTED AS PER PALLIATIVE CARE DRUG CHART
     Dates: start: 20181019
  13. LOPERAMIDE [Concomitant]
     Active Substance: LOPERAMIDE
     Indication: DIARRHOEA
     Dosage: TAKE ONE FOUR TIMES A DAY AS REQUIRED
     Dates: start: 20190117, end: 20190124
  14. FINASTERIDE. [Concomitant]
     Active Substance: FINASTERIDE
     Indication: PROSTATOMEGALY
     Dates: start: 20180817
  15. WATER FOR INJECTION [Concomitant]
     Active Substance: WATER
     Indication: PRODUCT USED FOR UNKNOWN INDICATION
     Dosage: USE AS DIRECTED: AMEND QUANTITY TO REQUIRED
     Dates: start: 20181115, end: 20181213
  16. ATORVASTATIN [Concomitant]
     Active Substance: ATORVASTATIN
     Indication: HYPERCHOLESTEROLAEMIA
     Dates: start: 20180817
  17. OMEPRAZOLE. [Suspect]
     Active Substance: OMEPRAZOLE
     Indication: PRODUCT USED FOR UNKNOWN INDICATION
     Dates: start: 20180403
  18. METOCLOPRAMIDE. [Concomitant]
     Active Substance: METOCLOPRAMIDE
     Indication: NAUSEA
     Dosage: USE AS DIRECTED
     Dates: start: 20181115, end: 20181213
  19. PIVMECILLINAM [Concomitant]
     Active Substance: AMDINOCILLIN PIVOXIL
     Indication: PRODUCT USED FOR UNKNOWN INDICATION
     Dates: start: 20181220, end: 20181223
  20. OXYCODONE [Concomitant]
     Active Substance: OXYCODONE
     Indication: PRODUCT USED FOR UNKNOWN INDICATION
     Dosage: 5MG (HALF OF ONE MILLILITER) EVERY 4 HOURS AS REQUIRED
     Dates: start: 20181221, end: 20181222

REACTIONS (2)
  - Tubulointerstitial nephritis [Fatal]
  - Acute kidney injury [Fatal]

NARRATIVE: CASE EVENT DATE: 201704
